FAERS Safety Report 8244289-X (Version None)
Quarter: 2012Q1

REPORT INFORMATION
  Report Type: 
  Country: None (occurrence: None)
  Receive Date: 20120329
  Receipt Date: 20120326
  Transmission Date: 20120608
  Serious: Yes (Other)
  Sender: FDA-Public Use
  Company Number: US-PFIZER INC-2010049901

PATIENT
  Sex: Female
  Weight: 91 kg

DRUGS (7)
  1. LYRICA [Suspect]
     Indication: FIBROMYALGIA
     Dosage: 75 MG, 1X/DAY
     Route: 048
     Dates: start: 20090101
  2. OXYBUTYNIN [Concomitant]
     Dosage: UNK
  3. ESTRADIOL [Concomitant]
     Dosage: UNK
  4. LISINOPRIL [Concomitant]
     Dosage: UNK
  5. SYNTHROID [Concomitant]
     Dosage: UNK
  6. GALANTAMINE [Concomitant]
     Dosage: UNK
  7. PRAVASTATIN [Concomitant]
     Dosage: UNK

REACTIONS (9)
  - OEDEMA PERIPHERAL [None]
  - ABDOMINAL DISTENSION [None]
  - BACK INJURY [None]
  - DIZZINESS [None]
  - FALL [None]
  - INTERVERTEBRAL DISC PROTRUSION [None]
  - INCREASED APPETITE [None]
  - WEIGHT INCREASED [None]
  - SWELLING FACE [None]
